FAERS Safety Report 9424524 (Version 1)
Quarter: 2013Q3

REPORT INFORMATION
  Report Type: Spontaneous
  Country: US (occurrence: None)
  Receive Date: 20130726
  Receipt Date: 20130726
  Transmission Date: 20140515
  Serious: Yes (Life-Threatening)
  Sender: FDA-Public Use
  Company Number: None

PATIENT
  Age: 63 Year
  Sex: Male
  Weight: 91.17 kg

DRUGS (1)
  1. INCIVEK [Suspect]
     Indication: COMA
     Dosage: EVERY 8 HOURS WITH FOOD STARE ON WEEK ONE OF CHRONIC HEPAT C W/O
     Dates: start: 20130509

REACTIONS (1)
  - Clostridium difficile colitis [None]
